FAERS Safety Report 9338014 (Version 4)
Quarter: 2014Q1

REPORT INFORMATION
  Report Type: Spontaneous
  Country: US (occurrence: US)
  Receive Date: 20130610
  Receipt Date: 20140204
  Transmission Date: 20141002
  Serious: No
  Sender: FDA-Public Use
  Company Number: US-B.I. PHARMACEUTICALS,INC./RIDGEFIELD-2013-BI-15652BP

PATIENT
  Age: 83 Year
  Sex: Male
  Weight: 72 kg

DRUGS (7)
  1. ATROVENT [Suspect]
     Indication: CHRONIC OBSTRUCTIVE PULMONARY DISEASE
     Dosage: 136 MCG
     Route: 055
     Dates: start: 201007
  2. ATROVENT [Suspect]
     Dosage: 136 MCG
     Route: 055
     Dates: start: 2012
  3. ZYRTEC [Concomitant]
     Indication: SNEEZING
     Dosage: 10 MG
     Route: 048
     Dates: start: 1993
  4. TOPROL [Concomitant]
     Route: 048
  5. AMLODIPINE [Concomitant]
     Route: 048
  6. MULTIVITAMIN [Concomitant]
     Route: 065
  7. ADVIL [Concomitant]
     Indication: ARTHRITIS
     Route: 048

REACTIONS (5)
  - Dyspnoea [Recovered/Resolved]
  - Increased upper airway secretion [Unknown]
  - Cough [Unknown]
  - Drug effect decreased [Not Recovered/Not Resolved]
  - Product quality issue [Recovered/Resolved]
